FAERS Safety Report 21195133 (Version 1)
Quarter: 2022Q3

REPORT INFORMATION
  Report Type: Spontaneous
  Country: US (occurrence: US)
  Receive Date: 20220810
  Receipt Date: 20220810
  Transmission Date: 20221027
  Serious: No
  Sender: FDA-Public Use
  Company Number: US-PFIZER INC-PV202200039785

PATIENT
  Age: 46 Year
  Sex: Male

DRUGS (1)
  1. XELJANZ XR [Suspect]
     Active Substance: TOFACITINIB CITRATE
     Indication: SAPHO syndrome
     Dosage: 11 MG, DAILY
     Route: 048
     Dates: start: 20220727

REACTIONS (6)
  - Off label use [Unknown]
  - Spondylitis [Unknown]
  - Gait inability [Unknown]
  - Pain in extremity [Unknown]
  - Hypertension [Unknown]
  - Hidradenitis [Unknown]
